FAERS Safety Report 13039757 (Version 1)
Quarter: 2016Q4

REPORT INFORMATION
  Report Type: Spontaneous
  Country: US (occurrence: US)
  Receive Date: 20161219
  Receipt Date: 20161219
  Transmission Date: 20170207
  Serious: No
  Sender: FDA-Public Use
  Company Number: US-ACTELION-A-US2016-139863

PATIENT
  Age: 53 Year
  Sex: Female

DRUGS (1)
  1. UPTRAVI [Suspect]
     Active Substance: SELEXIPAG
     Indication: PULMONARY ARTERIAL HYPERTENSION
     Dosage: UNK
     Route: 048
     Dates: start: 20160328

REACTIONS (9)
  - Dyspnoea exertional [Unknown]
  - Headache [Unknown]
  - Pain in jaw [Unknown]
  - Therapy non-responder [Unknown]
  - Vomiting [Unknown]
  - Cyanosis [Unknown]
  - Dizziness exertional [Unknown]
  - Nausea [Unknown]
  - Oxygen saturation decreased [Unknown]
